FAERS Safety Report 8926000 (Version 1)
Quarter: 2012Q4

REPORT INFORMATION
  Report Type: 
  Country: FR (occurrence: FR)
  Receive Date: 20121126
  Receipt Date: 20121126
  Transmission Date: 20130627
  Serious: Yes (Other)
  Sender: FDA-Public Use
  Company Number: PHHY2012FR105464

PATIENT
  Age: 82 Year
  Sex: Male

DRUGS (11)
  1. TEGRETOL [Suspect]
     Indication: RESTLESS LEGS SYNDROME
     Dosage: UKN, UKN, UNK
  2. TEGRETOL [Suspect]
     Dosage: UNK
     Dates: start: 20120724, end: 20120725
  3. RIVOTRIL [Suspect]
  4. SPECIAFOLDINE [Suspect]
     Indication: RESTLESS LEGS SYNDROME
     Dosage: 1 DF, BID
     Dates: start: 20120724
  5. LAMALINE [Suspect]
     Indication: PAIN
     Dates: end: 201207
  6. ODRIK [Concomitant]
     Dosage: 1 DF daily
  7. ISOPTINE [Concomitant]
     Dosage: 240 mg daily
  8. ESIDREX [Concomitant]
     Dosage: 0.5 DF, UNK
  9. DIFFU K [Concomitant]
     Dosage: 1 DF, UNK
  10. TRAMADOL [Concomitant]
     Dates: start: 2003
  11. CORTANCYL [Concomitant]
     Dosage: 1 mg, UNK

REACTIONS (25)
  - Diverticulum intestinal haemorrhagic [Unknown]
  - Temporal arteritis [Unknown]
  - Toxic skin eruption [Unknown]
  - Leukocytosis [Unknown]
  - Cholestasis [Unknown]
  - Leukocytoclastic vasculitis [Unknown]
  - Drug reaction with eosinophilia and systemic symptoms [Recovered/Resolved]
  - Systemic inflammatory response syndrome [Unknown]
  - Rash [Unknown]
  - Skin lesion [Unknown]
  - Pyrexia [Unknown]
  - Hepatocellular injury [Unknown]
  - Rash maculo-papular [Unknown]
  - Rash pustular [Unknown]
  - Lymphadenopathy [Unknown]
  - Face oedema [Unknown]
  - Purpura [Unknown]
  - Lichen sclerosus [Unknown]
  - VIIth nerve paralysis [Unknown]
  - Romberg test positive [Unknown]
  - Gait disturbance [Unknown]
  - Dysaesthesia [Unknown]
  - Leukocyturia [Unknown]
  - Eczema [Unknown]
  - Trichophytosis [Unknown]
